FAERS Safety Report 23592144 (Version 1)
Quarter: 2024Q1

REPORT INFORMATION
  Report Type: Spontaneous
  Country: US (occurrence: None)
  Receive Date: 20240304
  Receipt Date: 20240304
  Transmission Date: 20240410
  Serious: No
  Sender: FDA-Public Use
  Company Number: None

PATIENT
  Age: 78 Year
  Sex: Male

DRUGS (1)
  1. LENALIDOMIDE [Suspect]
     Active Substance: LENALIDOMIDE
     Indication: Myelodysplastic syndrome
     Dosage: 5MG QD ORAL
     Route: 048
     Dates: start: 20230428

REACTIONS (3)
  - Anaemia [None]
  - Arteriovenous malformation [None]
  - Haematochezia [None]

NARRATIVE: CASE EVENT DATE: 20240219
